FAERS Safety Report 6658667-3 (Version None)
Quarter: 2010Q1

REPORT INFORMATION
  Report Type: 
  Country: None (occurrence: None)
  Receive Date: 20100325
  Receipt Date: 20100315
  Transmission Date: 20100710
  Serious: Yes (Death)
  Sender: FDA-Public Use
  Company Number: 230457J10BRA

PATIENT
  Age: 46 Year
  Sex: Male

DRUGS (5)
  1. REBIF [Suspect]
     Indication: MULTIPLE SCLEROSIS RELAPSE
     Dosage: 44 MCG, 3 IN 1 WEEKS SUBCUTANEOUS
     Route: 058
     Dates: start: 20061222, end: 20091201
  2. FLUOXETINE [Concomitant]
  3. TEGRETOL [Concomitant]
  4. MANTIDAN (AMANTADINE HYDROCHLORIDE) [Concomitant]
  5. TAMARINE (TAMARINE /00912601/) [Concomitant]

REACTIONS (2)
  - RESPIRATORY ARREST [None]
  - SEPTIC SHOCK [None]
